FAERS Safety Report 9306680 (Version 1)
Quarter: 2013Q2

REPORT INFORMATION
  Report Type: Spontaneous
  Country: IT (occurrence: IT)
  Receive Date: 20130523
  Receipt Date: 20130523
  Transmission Date: 20140414
  Serious: Yes (Other)
  Sender: FDA-Public Use
  Company Number: IT-PERRIGO-13IT005325

PATIENT
  Age: 77 Year
  Sex: Female

DRUGS (1)
  1. MINOXIDIL 5% 30DAY 380 [Suspect]
     Indication: ANDROGENETIC ALOPECIA
     Dosage: UNK, BID
     Route: 061

REACTIONS (5)
  - Dermatosis [Recovered/Resolved with Sequelae]
  - Alopecia scarring [Not Recovered/Not Resolved]
  - Off label use [Unknown]
  - Drug ineffective [None]
  - Inflammatory marker increased [None]
